FAERS Safety Report 8155774-3 (Version None)
Quarter: 2012Q1

REPORT INFORMATION
  Report Type: 
  Country: None (occurrence: None)
  Receive Date: 20120222
  Receipt Date: 20120213
  Transmission Date: 20120608
  Serious: Yes (Death, Other)
  Sender: FDA-Public Use
  Company Number: CA-CELGENEUS-028-21880-11122570

PATIENT
  Sex: Male
  Weight: 84.5 kg

DRUGS (15)
  1. TYLENOL W/ CODEINE [Concomitant]
     Dosage: 300/30MG
     Route: 065
     Dates: start: 20100101
  2. EPREX [Concomitant]
     Route: 065
     Dates: start: 20111103, end: 20111124
  3. VITAMIN D [Concomitant]
     Route: 065
     Dates: start: 20090101
  4. EPREX [Concomitant]
     Route: 065
     Dates: start: 20111028
  5. BENADRYL [Concomitant]
     Route: 065
     Dates: start: 20111028
  6. VITAMIN B COMPLEX CAP [Concomitant]
     Route: 065
     Dates: start: 20090101
  7. ASCORBIC ACID [Concomitant]
     Route: 065
     Dates: start: 20090101
  8. DEXAMETHASONE [Suspect]
     Indication: MULTIPLE MYELOMA
     Dosage: 40 MILLIGRAM
     Route: 048
     Dates: start: 20111027, end: 20111208
  9. TINZAPARIN [Concomitant]
     Route: 065
     Dates: start: 20111027
  10. COLACE [Concomitant]
  11. REVLIMID [Suspect]
     Indication: MULTIPLE MYELOMA
     Dosage: 25 MILLIGRAM
     Route: 048
     Dates: start: 20111027, end: 20111205
  12. ALLERTIN [Concomitant]
     Route: 065
     Dates: start: 20111028
  13. ASPIRIN [Concomitant]
     Route: 065
     Dates: start: 20080101, end: 20111224
  14. CURAMIN [Concomitant]
     Route: 065
     Dates: start: 20090101
  15. CALCIUM [Concomitant]
     Route: 065
     Dates: start: 20090101

REACTIONS (2)
  - DEATH [None]
  - SINUSITIS [None]
